FAERS Safety Report 10273612 (Version 1)
Quarter: 2014Q3

REPORT INFORMATION
  Report Type: Spontaneous
  Country: IT (occurrence: IT)
  Receive Date: 20140702
  Receipt Date: 20140702
  Transmission Date: 20150326
  Serious: Yes (Death, Hospitalization)
  Sender: FDA-Public Use
  Company Number: IT-TEVA-491258ISR

PATIENT
  Age: 67 Year
  Sex: Male
  Weight: 64 kg

DRUGS (8)
  1. FOLINGRAV [Concomitant]
     Dosage: 1 DOSAGE FORMS DAILY;
     Route: 048
  2. OMEPRAZOLO [Concomitant]
     Active Substance: OMEPRAZOLE
     Dosage: 20 MILLIGRAM DAILY;
     Route: 048
  3. FERRO GRAD C 105 MG + 500 MG [Concomitant]
     Route: 048
  4. DELTACORTENE 25 MG [Concomitant]
     Active Substance: PREDNISONE
     Dosage: 25 MILLIGRAM DAILY;
     Route: 048
  5. CONTRAMAL 100 MG/ML [Concomitant]
     Active Substance: TRAMADOL HYDROCHLORIDE
     Dosage: 5 GTT DAILY;
     Route: 048
  6. CISPLATINO TEVA ITALIA [Suspect]
     Active Substance: CISPLATIN
     Indication: CHEMOTHERAPY
     Dosage: 130 MILLIGRAM DAILY;
     Route: 042
     Dates: start: 20140605, end: 20140605
  7. ALIMTA [Suspect]
     Active Substance: PEMETREXED DISODIUM
     Indication: CHEMOTHERAPY
     Dosage: 900 MILLIGRAM DAILY;
     Route: 042
     Dates: start: 20140605, end: 20140605
  8. PARACETAMOLO [Concomitant]
     Active Substance: ACETAMINOPHEN
     Route: 048

REACTIONS (8)
  - Neutropenia [Fatal]
  - Asthenia [Fatal]
  - Stomatitis [Fatal]
  - Pancytopenia [Fatal]
  - Renal failure acute [Fatal]
  - Dehydration [Fatal]
  - Metabolic acidosis [Unknown]
  - Rash [Fatal]

NARRATIVE: CASE EVENT DATE: 20140613
